FAERS Safety Report 22981994 (Version 3)
Quarter: 2025Q1

REPORT INFORMATION
  Report Type: Spontaneous
  Country: US (occurrence: US)
  Receive Date: 20230926
  Receipt Date: 20250204
  Transmission Date: 20250408
  Serious: No
  Sender: SANOFI AVENTIS
  Company Number: US-SA-SAC20230922001076

PATIENT
  Age: 47 Year
  Sex: Male

DRUGS (1)
  1. DUPIXENT [Suspect]
     Active Substance: DUPILUMAB
     Indication: Eosinophilic oesophagitis
     Dosage: 300 MG, QW
     Route: 058
     Dates: start: 20230718

REACTIONS (4)
  - Oropharyngeal discomfort [Not Recovered/Not Resolved]
  - Wheezing [Unknown]
  - Oral herpes [Unknown]
  - Shoulder operation [Unknown]

NARRATIVE: CASE EVENT DATE: 20230917
